FAERS Safety Report 9733038 (Version 3)
Quarter: 2015Q3

REPORT INFORMATION
  Report Type: Spontaneous
  Country: US (occurrence: US)
  Receive Date: 20131204
  Receipt Date: 20150804
  Transmission Date: 20151125
  Serious: No
  Sender: FDA-Public Use
  Company Number: US-GILEAD-2009-0022307

PATIENT
  Age: 64 Year
  Sex: Female
  Weight: 70.31 kg

DRUGS (13)
  1. SPIRIVA [Concomitant]
     Active Substance: TIOTROPIUM BROMIDE MONOHYDRATE
  2. ALBUTEROL. [Concomitant]
     Active Substance: ALBUTEROL
  3. PREVACID [Concomitant]
     Active Substance: LANSOPRAZOLE
  4. COUMADIN [Concomitant]
     Active Substance: WARFARIN SODIUM
  5. ALDACTONE [Concomitant]
     Active Substance: SPIRONOLACTONE
  6. MAG-OX [Concomitant]
     Active Substance: MAGNESIUM OXIDE
  7. LETAIRIS [Suspect]
     Active Substance: AMBRISENTAN
     Indication: PULMONARY ARTERIAL HYPERTENSION
     Route: 048
     Dates: start: 20071211
  8. OXYGEN. [Concomitant]
     Active Substance: OXYGEN
  9. REVATIO [Concomitant]
     Active Substance: SILDENAFIL CITRATE
     Dates: start: 20080429
  10. POTASSIUM CHLO [Concomitant]
  11. BUMEX [Concomitant]
     Active Substance: BUMETANIDE
  12. FOLBIC [Concomitant]
     Active Substance: CYANOCOBALAMIN\FOLIC ACID\PYRIDOXINE
  13. LISINOPRIL. [Concomitant]
     Active Substance: LISINOPRIL

REACTIONS (1)
  - Renal impairment [Unknown]
